FAERS Safety Report 9928811 (Version 1)
Quarter: 2014Q1

REPORT INFORMATION
  Report Type: Report from Study
  Country: FR (occurrence: FR)
  Receive Date: 20140227
  Receipt Date: 20140227
  Transmission Date: 20141002
  Serious: Yes (Hospitalization, Other)
  Sender: FDA-Public Use
  Company Number: PHHY2014FR021584

PATIENT
  Age: 11 Year
  Sex: Male
  Weight: 32.4 kg

DRUGS (1)
  1. SOMATROPIN [Suspect]
     Indication: SMALL FOR DATES BABY
     Dosage: 1.96 MG, QD
     Route: 058
     Dates: start: 20130911

REACTIONS (2)
  - Social avoidant behaviour [Unknown]
  - Agitation [Recovered/Resolved]
